FAERS Safety Report 6380420-9 (Version None)
Quarter: 2009Q3

REPORT INFORMATION
  Report Type: 
  Country: None (occurrence: None)
  Receive Date: 20090929
  Receipt Date: 20090916
  Transmission Date: 20100115
  Serious: Yes (Hospitalization)
  Sender: FDA-Public Use
  Company Number: PHHY2009CA40543

PATIENT
  Sex: Male

DRUGS (7)
  1. EXJADE [Suspect]
     Indication: THALASSAEMIA
     Dosage: 1500 MG, QD
     Route: 048
  2. FOLIC ACID [Concomitant]
     Dosage: 5 MG, QD
     Route: 048
  3. ACTONEL [Concomitant]
  4. VITAMIN D [Concomitant]
     Dosage: 1000 IU, QD
     Route: 048
  5. REACTINE [Concomitant]
     Dosage: 10 MG, QD
     Route: 048
  6. HYDROXYZINE [Concomitant]
     Dosage: UNK
  7. OLAZEPAM [Concomitant]

REACTIONS (7)
  - CANDIDIASIS [None]
  - INSOMNIA [None]
  - OEDEMA PERIPHERAL [None]
  - PRURITUS GENERALISED [None]
  - PULMONARY HYPERTENSION [None]
  - STRESS [None]
  - URTICARIA [None]
